FAERS Safety Report 24125235 (Version 1)
Quarter: 2024Q3

REPORT INFORMATION
  Report Type: Other
  Country: AU (occurrence: AU)
  Receive Date: 20240723
  Receipt Date: 20240723
  Transmission Date: 20241017
  Serious: Yes (Hospitalization, Other)
  Sender: AVONDALE PHARMACEUTICALS
  Company Number: AU-Avondale Pharmaceuticals, LLC-2159460

PATIENT

DRUGS (5)
  1. MOBIC [Suspect]
     Active Substance: MELOXICAM
     Indication: Product used for unknown indication
     Route: 065
  2. ORPHENADRINE CITRATE [Suspect]
     Active Substance: ORPHENADRINE CITRATE
     Route: 065
  3. FENTANYL [Suspect]
     Active Substance: FENTANYL\FENTANYL CITRATE
  4. ASPIRIN [Suspect]
     Active Substance: ASPIRIN
     Route: 065
  5. PHENYTOIN [Suspect]
     Active Substance: PHENYTOIN
     Route: 065

REACTIONS (6)
  - Somnolence [Recovered/Resolved]
  - Delirium [Recovered/Resolved]
  - Sepsis [Recovered/Resolved]
  - Ileus [Recovered/Resolved]
  - Urinary retention [Recovered/Resolved]
  - Coma scale abnormal [Recovered/Resolved]
